FAERS Safety Report 9849461 (Version 1)
Quarter: 2014Q1

REPORT INFORMATION
  Report Type: Spontaneous
  Country: IN (occurrence: None)
  Receive Date: 20140124
  Receipt Date: 20140124
  Transmission Date: 20141002
  Serious: Yes (Other)
  Sender: FDA-Public Use
  Company Number: 2014HINLIT0012

PATIENT
  Age: 30 Year
  Sex: Male

DRUGS (7)
  1. LITHIUM (LITHIUM) UNKNOWN [Suspect]
     Indication: AFFECTIVE DISORDER
  2. DIVALPROATE SODIUM (DIVALPROATE SODIUM) [Concomitant]
  3. OXCARBAZEPINE (OXCARBAZEPINE) [Concomitant]
  4. OLANZAPINE (OLANZAPINE) [Concomitant]
  5. HALOPERIDOL (HALOPERIDOL) [Concomitant]
  6. CARBAMAZEPINE (CARBAMAZEPINE) [Concomitant]
  7. TRIHEXYPHENIDYL (TRIHEXYPHENIDYL) [Concomitant]

REACTIONS (1)
  - Delirium [None]
